FAERS Safety Report 7369314-X (Version None)
Quarter: 2011Q1

REPORT INFORMATION
  Report Type: 
  Country: None (occurrence: None)
  Receive Date: 20110323
  Receipt Date: 20110314
  Transmission Date: 20110831
  Serious: Yes (Other)
  Sender: FDA-Public Use
  Company Number: B0705800A

PATIENT
  Sex: Female

DRUGS (7)
  1. PREDNISONE [Concomitant]
  2. CLENIL [Concomitant]
  3. IPRATROPIUM BROMIDE [Concomitant]
  4. AEROCHAMBER PLUS [Suspect]
     Indication: ASTHMA
     Route: 055
  5. SALBUTAMOL [Concomitant]
  6. BECLOMETHASONE DIPROPIONATE [Concomitant]
  7. SEREVENT [Suspect]
     Indication: ASTHMA
     Dosage: 1PUFF FOUR TIMES PER DAY
     Route: 055

REACTIONS (3)
  - ASTHMA [None]
  - DRUG EFFECT DECREASED [None]
  - PRODUCT QUALITY ISSUE [None]
